FAERS Safety Report 21794884 (Version 1)
Quarter: 2022Q4

REPORT INFORMATION
  Report Type: Report from Study
  Country: US (occurrence: US)
  Receive Date: 20221229
  Receipt Date: 20221229
  Transmission Date: 20230113
  Serious: No
  Sender: FDA-Public Use
  Company Number: US-ABBVIE-4223817

PATIENT
  Age: 55 Year
  Sex: Female

DRUGS (1)
  1. HUMIRA [Suspect]
     Active Substance: ADALIMUMAB
     Indication: Psoriasis
     Dosage: FORM  STRENGTH 40 MG, CITRATE FREE
     Route: 058

REACTIONS (3)
  - Rash [Not Recovered/Not Resolved]
  - Skin disorder [Unknown]
  - Headache [Unknown]

NARRATIVE: CASE EVENT DATE: 20221124
